FAERS Safety Report 10570265 (Version 1)
Quarter: 2014Q4

REPORT INFORMATION
  Report Type: Spontaneous
  Country: US (occurrence: None)
  Receive Date: 20141106
  Receipt Date: 20141106
  Transmission Date: 20150529
  Serious: Yes (Life-Threatening, Disabling)
  Sender: FDA-Public Use
  Company Number: None

PATIENT
  Age: 81 Year
  Sex: Female
  Weight: 53.52 kg

DRUGS (2)
  1. ALBUTEROL SULFATE. [Suspect]
     Active Substance: ALBUTEROL SULFATE
     Indication: PNEUMONIA
     Dosage: AT BEDTIME, NEBULIZER
     Dates: start: 20141015, end: 20141017
  2. ALBUTEROL SULFATE. [Suspect]
     Active Substance: ALBUTEROL SULFATE
     Indication: PLEURISY
     Dosage: AT BEDTIME, NEBULIZER
     Dates: start: 20141015, end: 20141017

REACTIONS (4)
  - Anaphylactic shock [None]
  - Tremor [None]
  - Respiratory arrest [None]
  - Dyskinesia [None]

NARRATIVE: CASE EVENT DATE: 20141017
